FAERS Safety Report 19369949 (Version 1)
Quarter: 2021Q2

REPORT INFORMATION
  Report Type: Spontaneous
  Country: US (occurrence: US)
  Receive Date: 20210603
  Receipt Date: 20210603
  Transmission Date: 20210717
  Serious: No
  Sender: FDA-Public Use
  Company Number: US-TAKEDA-2021TUS035091

PATIENT
  Sex: Female
  Weight: 100 kg

DRUGS (2)
  1. XANAX [Concomitant]
     Active Substance: ALPRAZOLAM
     Dosage: UNK
  2. TRINTELLIX [Suspect]
     Active Substance: VORTIOXETINE HYDROBROMIDE
     Indication: GENERALISED ANXIETY DISORDER
     Dosage: 5 MILLIGRAM, QD
     Route: 065
     Dates: start: 201907

REACTIONS (5)
  - Hormone level abnormal [Unknown]
  - Libido decreased [Unknown]
  - Vision blurred [Recovered/Resolved]
  - Diplopia [Unknown]
  - Product use in unapproved indication [Unknown]
